FAERS Safety Report 20579304 (Version 2)
Quarter: 2022Q1

REPORT INFORMATION
  Report Type: Spontaneous
  Country: NO (occurrence: NO)
  Receive Date: 20220310
  Receipt Date: 20220311
  Transmission Date: 20220424
  Serious: Yes (Other)
  Sender: FDA-Public Use
  Company Number: None

PATIENT
  Age: 36 Year
  Sex: Male

DRUGS (8)
  1. KETALAR [Suspect]
     Active Substance: KETAMINE HYDROCHLORIDE
     Indication: Perioperative analgesia
     Dosage: 100 MG
     Route: 030
     Dates: start: 20220214, end: 20220214
  2. KETAMINE HYDROCHLORIDE [Suspect]
     Active Substance: KETAMINE HYDROCHLORIDE
     Indication: Perioperative analgesia
     Dosage: 105 MG (1 MG/ML, ADJUVANT PEROPERATIVE/POST 105 MG IV PEROPERATIVE IN TOTAL (BOLUS + INFUSION), 0.5
     Route: 042
     Dates: start: 20220214, end: 20220214
  3. PROPOFOL [Concomitant]
     Active Substance: PROPOFOL
     Indication: General anaesthesia
     Dosage: GENERAL ANESTHESIA WAS MAINTAINED WITH PROPOFOL TCI INITIALLY AND TRANSITION TO SEVOFLURAN WITH MAC
     Dates: start: 20220214, end: 20220214
  4. REMIFENTANIL [Concomitant]
     Active Substance: REMIFENTANIL
     Indication: Perioperative analgesia
     Dosage: TCI
     Route: 042
     Dates: start: 20220214, end: 20220214
  5. RITALIN [Concomitant]
     Active Substance: METHYLPHENIDATE HYDROCHLORIDE
     Indication: Attention deficit hyperactivity disorder
     Dosage: 60 MG
     Route: 048
     Dates: start: 2021
  6. FENTANYL [Concomitant]
     Active Substance: FENTANYL
     Indication: Perioperative analgesia
     Dosage: BASIC ANALGETIC TREATMENT. BOLUSES.
     Dates: start: 20220214, end: 20220214
  7. ESCITALOPRAM [Concomitant]
     Active Substance: ESCITALOPRAM OXALATE
     Indication: Depression
     Dosage: 15 MG, 1X/DAY
     Route: 048
     Dates: start: 2021
  8. SEVOFLURANE [Concomitant]
     Active Substance: SEVOFLURANE
     Indication: General anaesthesia
     Dosage: GENERAL ANESTHESIA WAS MAINTAINED WITH PROPOFOL TCI INITIALLY AND TRANSITION TO SEVOFLURAN WITH MAC
     Dates: start: 20220214, end: 20220214

REACTIONS (2)
  - Dystonia [Recovered/Resolved]
  - Unresponsive to stimuli [Recovered/Resolved]

NARRATIVE: CASE EVENT DATE: 20220214
